FAERS Safety Report 13492541 (Version 2)
Quarter: 2017Q2

REPORT INFORMATION
  Report Type: Spontaneous
  Country: US (occurrence: US)
  Receive Date: 20170427
  Receipt Date: 20170605
  Transmission Date: 20170830
  Serious: No
  Sender: FDA-Public Use
  Company Number: US-ELI_LILLY_AND_COMPANY-US201704008196

PATIENT
  Sex: Female
  Weight: 83.9 kg

DRUGS (5)
  1. REMODULIN [Suspect]
     Active Substance: TREPROSTINIL
     Indication: PULMONARY ARTERIAL HYPERTENSION
     Dosage: 14 NG/KG/MIN
     Route: 058
     Dates: start: 20150901
  2. LETAIRIS [Suspect]
     Active Substance: AMBRISENTAN
     Indication: PULMONARY ARTERIAL HYPERTENSION
     Dosage: 10 MG, QD
     Route: 065
  3. ADCIRCA [Suspect]
     Active Substance: TADALAFIL
     Indication: PULMONARY ARTERIAL HYPERTENSION
     Dosage: UNK, UNKNOWN
     Route: 065
  4. UPTRAVI [Suspect]
     Active Substance: SELEXIPAG
     Indication: PULMONARY ARTERIAL HYPERTENSION
     Dosage: 1600 UG, BID
     Route: 065
     Dates: start: 20170318
  5. UPTRAVI [Suspect]
     Active Substance: SELEXIPAG
     Dosage: 1400 UG, BID
     Route: 065
     Dates: start: 20170318

REACTIONS (14)
  - Nausea [Unknown]
  - Injection site erythema [Unknown]
  - Injection site warmth [Unknown]
  - Flushing [Unknown]
  - Headache [Unknown]
  - Pain in jaw [Unknown]
  - Injection site pain [Unknown]
  - Dyspepsia [Unknown]
  - Abdominal discomfort [Unknown]
  - Vomiting [Unknown]
  - Injection site swelling [Unknown]
  - Nasal congestion [Unknown]
  - Diarrhoea [Unknown]
  - Pain in extremity [Unknown]
